FAERS Safety Report 14613533 (Version 3)
Quarter: 2019Q3

REPORT INFORMATION
  Report Type: Spontaneous
  Country: US (occurrence: US)
  Receive Date: 20180308
  Receipt Date: 20190711
  Transmission Date: 20191004
  Serious: No
  Sender: FDA-Public Use
  Company Number: US-PFIZER INC-2018096437

PATIENT
  Age: 60 Year
  Sex: Female
  Weight: 77.11 kg

DRUGS (3)
  1. GABAPENTIN. [Suspect]
     Active Substance: GABAPENTIN
     Dosage: 3200 MG, DAILY [400MG CAPSULES, 3200MG DAILY]
  2. GABAPENTIN. [Suspect]
     Active Substance: GABAPENTIN
     Dosage: 3200 MG, DAILY [200 MG CAPSULES, 3200MG DAILY]
  3. LYRICA [Concomitant]
     Active Substance: PREGABALIN
     Indication: PAIN
     Dosage: UNK

REACTIONS (1)
  - Drug ineffective [Unknown]
